FAERS Safety Report 5722086-4 (Version None)
Quarter: 2008Q2

REPORT INFORMATION
  Report Type: 
  Country: None (occurrence: None)
  Receive Date: 20080429
  Receipt Date: 20070507
  Transmission Date: 20081010
  Serious: No
  Sender: FDA-Public Use
  Company Number: US-ASTRAZENECA-2007UW09638

PATIENT
  Age: 47 Year
  Sex: Male
  Weight: 104.3 kg

DRUGS (3)
  1. NEXIUM [Suspect]
     Indication: GASTROOESOPHAGEAL REFLUX DISEASE
     Route: 048
     Dates: start: 20070501
  2. VISTARIL [Concomitant]
  3. BENTYL [Concomitant]

REACTIONS (1)
  - ANXIETY [None]
